FAERS Safety Report 5062844-5 (Version None)
Quarter: 2006Q3

REPORT INFORMATION
  Report Type: 
  Country: None (occurrence: None)
  Receive Date: 20060724
  Receipt Date: 20060707
  Transmission Date: 20061208
  Serious: Yes (Life-Threatening, Hospitalization)
  Sender: FDA-Public Use
  Company Number: AND_0373_2006

PATIENT
  Age: 57 Year
  Sex: Female

DRUGS (7)
  1. METFORMIN [Suspect]
     Indication: DIABETES MELLITUS NON-INSULIN-DEPENDENT
     Dosage: 3 G QDAY PO
     Route: 048
     Dates: end: 20060513
  2. LOSARTAN POSTASSIUM [Suspect]
     Dosage: 50 MG QDAY PO
     Route: 048
     Dates: end: 20060513
  3. RAMIPRIL [Concomitant]
  4. ASPIRIN [Concomitant]
  5. ATENOLOL [Concomitant]
  6. FUROSEMIDE [Concomitant]
  7. MOXONIDINE [Concomitant]

REACTIONS (7)
  - BASE EXCESS NEGATIVE [None]
  - BLOOD GASES ABNORMAL [None]
  - DEHYDRATION [None]
  - DIALYSIS [None]
  - LACTIC ACIDOSIS [None]
  - RENAL FAILURE [None]
  - VOMITING [None]
